FAERS Safety Report 25406409 (Version 2)
Quarter: 2025Q2

REPORT INFORMATION
  Report Type: Spontaneous
  Country: GT (occurrence: GT)
  Receive Date: 20250606
  Receipt Date: 20250613
  Transmission Date: 20250717
  Serious: No
  Sender: PFIZER
  Company Number: GT-PFIZER INC-PV202500067101

PATIENT
  Age: 7 Year
  Sex: Male

DRUGS (1)
  1. GENOTROPIN [Suspect]
     Active Substance: SOMATROPIN
     Dosage: 0.6 MG, 1X/DAY

REACTIONS (3)
  - Injection site pain [Unknown]
  - Injection site discomfort [Unknown]
  - Device breakage [Unknown]

NARRATIVE: CASE EVENT DATE: 20250602
